FAERS Safety Report 8805250 (Version 1)
Quarter: 2012Q4

REPORT INFORMATION
  Report Type: 
  Country: GB (occurrence: GB)
  Receive Date: 20120924
  Receipt Date: 20120924
  Transmission Date: 20130627
  Serious: Yes (Hospitalization)
  Sender: FDA-Public Use
  Company Number: PHHY2012GB081345

PATIENT
  Age: 51 Year

DRUGS (4)
  1. CLONIDINE [Suspect]
  2. GLYCOPYRRONIUM [Suspect]
     Route: 058
  3. RILUZOLE [Suspect]
  4. ATROPINE [Suspect]

REACTIONS (2)
  - Excessive granulation tissue [Not Recovered/Not Resolved]
  - Feeding tube complication [Not Recovered/Not Resolved]
